FAERS Safety Report 6133350-1 (Version None)
Quarter: 2009Q1

REPORT INFORMATION
  Report Type: 
  Country: None (occurrence: None)
  Receive Date: 20090325
  Receipt Date: 20090325
  Transmission Date: 20090719
  Serious: Yes (Other)
  Sender: FDA-Public Use
  Company Number: None

PATIENT
  Sex: Female
  Weight: 68.0396 kg

DRUGS (1)
  1. NORVASC [Suspect]
     Indication: HYPERTENSION
     Dosage: 2.5MG 1 TIME PER DAY PO
     Route: 048
     Dates: start: 20090314, end: 20090317

REACTIONS (2)
  - HEART RATE INCREASED [None]
  - PALPITATIONS [None]
